FAERS Safety Report 6744425-8 (Version None)
Quarter: 2010Q2

REPORT INFORMATION
  Report Type: 
  Country: None (occurrence: None)
  Receive Date: 20100527
  Receipt Date: 20100514
  Transmission Date: 20101027
  Serious: Yes (Death)
  Sender: FDA-Public Use
  Company Number: CO-PFIZER INC-2010062417

PATIENT
  Sex: Male

DRUGS (2)
  1. LYRICA [Suspect]
     Dosage: 150 MG, UNK
     Route: 048
  2. NEURONTIN [Suspect]
     Dosage: 300 MG, UNK
     Route: 048

REACTIONS (1)
  - DEATH [None]
